FAERS Safety Report 5045479-X (Version None)
Quarter: 2006Q3

REPORT INFORMATION
  Report Type: 
  Country: None (occurrence: None)
  Receive Date: 20060707
  Receipt Date: 20060627
  Transmission Date: 20061208
  Serious: Yes (Other)
  Sender: FDA-Public Use
  Company Number: PHRM2006FR01906

PATIENT
  Age: 35 Year
  Sex: Male

DRUGS (1)
  1. TRASICOR [Suspect]
     Route: 048

REACTIONS (1)
  - HEPATITIS [None]
